FAERS Safety Report 12483251 (Version 1)
Quarter: 2016Q2

REPORT INFORMATION
  Report Type: Other
  Country: US (occurrence: US)
  Receive Date: 20160621
  Receipt Date: 20160621
  Transmission Date: 20160815
  Serious: Yes (Other)
  Sender: FDA-Public Use
  Company Number: US-JUBILANT GENERICS LIMITED-1054106

PATIENT
  Age: 42 Year
  Sex: Male

DRUGS (3)
  1. PAROXETINE. [Suspect]
     Active Substance: PAROXETINE
  2. BUDESONIDE/FORMOTEROL UNKNOWN [Suspect]
     Active Substance: BUDESONIDE\FORMOTEROL
  3. ALCOHOL UNKNOWN [Suspect]
     Active Substance: ALCOHOL

REACTIONS (10)
  - Homicide [Unknown]
  - Serotonin syndrome [Unknown]
  - Drug interaction [Unknown]
  - Alcohol use [None]
  - Tremor [None]
  - Akathisia [Unknown]
  - Physical assault [None]
  - Intentional product misuse [None]
  - Feeling of body temperature change [None]
  - Memory impairment [None]

NARRATIVE: CASE EVENT DATE: 20160608
